FAERS Safety Report 12482867 (Version 1)
Quarter: 2016Q2

REPORT INFORMATION
  Report Type: Spontaneous
  Country: US (occurrence: US)
  Receive Date: 20160620
  Receipt Date: 20160620
  Transmission Date: 20160815
  Serious: No
  Sender: FDA-Public Use
  Company Number: US-PFIZER INC-2016285735

PATIENT
  Age: 7 Decade
  Sex: Male
  Weight: 109 kg

DRUGS (19)
  1. BUPROPION. [Concomitant]
     Active Substance: BUPROPION
     Indication: DEPRESSION
     Dosage: 150 MG, ONE TABLET, 2X/DAY
     Route: 048
  2. LANTUS [Concomitant]
     Active Substance: INSULIN GLARGINE
     Indication: DIABETES MELLITUS
     Dosage: 30 UNITS SUBCUTANEOUS INJECTION EVERY NIGHT
     Route: 058
  3. SIMVASTATIN. [Concomitant]
     Active Substance: SIMVASTATIN
     Dosage: 20MG ONE TABLET BY MOUTH A DAY
     Route: 048
  4. VITAMIN B COMPLEX [Concomitant]
     Active Substance: CYANOCOBALAMIN\DEXPANTHENOL\NIACINAMIDE\PYRIDOXINE HYDROCHLORIDE\RIBOFLAVIN 5^-PHOSPHATE SODIUM\THIAMINE HYDROCHLORIDE\VITAMIN B COMPLEX
     Dosage: ONE TABLET, 1X/DAY
     Route: 048
     Dates: start: 2015
  5. VICKS NYQUIL [Concomitant]
     Active Substance: ACETAMINOPHEN\DEXTROMETHORPHAN HYDROBROMIDE\DOXYLAMINE SUCCINATE
     Indication: SLEEP DISORDER
     Dosage: ONE CAPSULE BY MOUTH NIGHTLY WHEN NEEDED
     Route: 048
  6. BENADRYL [Concomitant]
     Active Substance: DIPHENHYDRAMINE HYDROCHLORIDE
     Indication: SLEEP DISORDER
     Dosage: TWO 25MG CAPSULES BY MOUTH NIGHTLY WHEN NEEDED
     Route: 048
  7. VITAMIN D3-2000 [Concomitant]
     Dosage: ONE TABLET BY MOUTH A DAY
     Route: 048
     Dates: start: 2015
  8. FISH OIL [Concomitant]
     Active Substance: FISH OIL
     Dosage: 1 DF, 1X/DAY
     Route: 048
  9. LEVOTHYROXINE. [Concomitant]
     Active Substance: LEVOTHYROXINE
     Dosage: 75MCG 0.05MG ONE TABLET BY MOUTH DAILY
     Route: 048
  10. PREGABALIN. [Suspect]
     Active Substance: PREGABALIN
     Dosage: TWO 100MG CAPSULES, 1X/DAY
     Route: 048
  11. METFORMIN [Concomitant]
     Active Substance: METFORMIN HYDROCHLORIDE
     Indication: DIABETES MELLITUS
     Dosage: 1000 MG ONE TABLET, 2X/DAY
     Route: 048
  12. TANZEUM [Concomitant]
     Active Substance: ALBIGLUTIDE
     Indication: DIABETES MELLITUS
     Dosage: 50 UNITS SUBCUTANEOUS INJECTION ONCE A WEEK
     Route: 058
     Dates: start: 201605
  13. DOXYCYCLINE. [Concomitant]
     Active Substance: DOXYCYCLINE
     Indication: ROSACEA
     Dosage: 50MG TWO CAPSULES, 2X/DAY
     Route: 048
  14. BABY ASPIRIN [Concomitant]
     Active Substance: ASPIRIN
     Indication: BLOOD DISORDER
     Dosage: 80MG ONE TABLET BY MOUTH DAILY
     Route: 048
  15. PREGABALIN. [Suspect]
     Active Substance: PREGABALIN
     Indication: DIABETIC NEUROPATHY
     Dosage: TWO 75MG CAPSULES, 1X/DAY  EVERY EVENING
     Route: 048
  16. LISINOPRIL. [Concomitant]
     Active Substance: LISINOPRIL
     Dosage: 20 MG ONE TABLET, 1X/DAY
     Route: 048
  17. STOOL SOFTENER [Concomitant]
     Active Substance: DOCUSATE CALCIUM
     Indication: CONSTIPATION
     Dosage: TWO CAPSULES BY MOUTH ONCE A DAY
     Route: 048
  18. VITAMIN B12 [Concomitant]
     Active Substance: CYANOCOBALAMIN
     Dosage: ONE TABLET BY MOUTH ONCE A WEEK
     Route: 048
  19. ONE-A-DAY NOS [Concomitant]
     Active Substance: MINERALS\VITAMINS
     Dosage: 1 DF, 1X/DAY
     Route: 048

REACTIONS (3)
  - Insomnia [Unknown]
  - Intentional product misuse [Unknown]
  - Intentional product use issue [Unknown]
